FAERS Safety Report 6376942-7 (Version None)
Quarter: 2009Q3

REPORT INFORMATION
  Report Type: 
  Country: None (occurrence: None)
  Receive Date: 20090925
  Receipt Date: 20090917
  Transmission Date: 20100115
  Serious: Yes (Other)
  Sender: FDA-Public Use
  Company Number: BR-PFIZER INC-2009192044

PATIENT

DRUGS (5)
  1. PROVERA [Suspect]
     Indication: MENSTRUATION DELAYED
     Dosage: 10 MG, UNK
     Route: 048
     Dates: start: 20090331
  2. LOSARTAN [Concomitant]
     Indication: HYPERTENSION
     Dosage: UNK
  3. AMLODIPINE [Concomitant]
     Indication: HYPERTENSION
     Dosage: UNK
  4. PURAN T4 [Concomitant]
     Indication: THYROID DISORDER
     Dosage: UNK
  5. GARDENAL ^AVENTIS^ [Concomitant]
     Indication: EPILEPSY
     Dosage: UNK

REACTIONS (7)
  - ABDOMINAL DISTENSION [None]
  - ADRENAL CYST [None]
  - BLOOD PRESSURE INADEQUATELY CONTROLLED [None]
  - BREAST PAIN [None]
  - HEADACHE [None]
  - IRRITABILITY [None]
  - LIBIDO INCREASED [None]
